FAERS Safety Report 24229978 (Version 2)
Quarter: 2024Q3

REPORT INFORMATION
  Report Type: Spontaneous
  Country: US (occurrence: US)
  Receive Date: 20240820
  Receipt Date: 20240909
  Transmission Date: 20241016
  Serious: Yes (Other)
  Sender: MERCK
  Company Number: US-009507513-2408USA004761

PATIENT
  Age: 74 Year
  Sex: Female

DRUGS (1)
  1. KEYTRUDA [Suspect]
     Active Substance: PEMBROLIZUMAB
     Indication: Breast cancer metastatic
     Dosage: UNK
     Dates: start: 20200801

REACTIONS (2)
  - Central venous catheterisation [Recovered/Resolved]
  - Product use issue [Unknown]
